FAERS Safety Report 9406502 (Version 1)
Quarter: 2013Q3

REPORT INFORMATION
  Report Type: Spontaneous
  Country: CA (occurrence: CA)
  Receive Date: 20130718
  Receipt Date: 20130718
  Transmission Date: 20140515
  Serious: Yes (Other)
  Sender: FDA-Public Use
  Company Number: CA-JNJFOC-20130707998

PATIENT
  Sex: Female

DRUGS (1)
  1. EXTRA STRENGTH TYLENOL EZ TABS [Suspect]
     Indication: PRODUCT USED FOR UNKNOWN INDICATION
     Dosage: 50 TABLETS AT ONCE
     Route: 048
     Dates: start: 20130710

REACTIONS (2)
  - Overdose [Unknown]
  - Alcohol use [None]
